FAERS Safety Report 5573208-X (Version None)
Quarter: 2007Q4

REPORT INFORMATION
  Report Type: 
  Country: None (occurrence: None)
  Receive Date: 20071220
  Receipt Date: 20071214
  Transmission Date: 20080405
  Serious: Yes (Disabling)
  Sender: FDA-Public Use
  Company Number: 2007S1000046

PATIENT
  Age: 7 Day
  Sex: Female
  Weight: 0.75 kg

DRUGS (6)
  1. NITRIC OXIDE [Suspect]
     Indication: LUNG DISORDER
     Dosage: 5 PPM; CONT; INH
     Route: 055
     Dates: start: 20070222, end: 20070315
  2. NITRIC OXIDE [Suspect]
     Indication: PROPHYLAXIS
     Dosage: 5 PPM; CONT; INH
     Route: 055
     Dates: start: 20070222, end: 20070315
  3. AMPICILLIN [Concomitant]
  4. AMIKACIN [Concomitant]
  5. ERYTHROPOIETIN [Concomitant]
  6. THEOPHYLLINE [Concomitant]

REACTIONS (4)
  - HYDROCEPHALUS [None]
  - HYPERGLYCAEMIA [None]
  - HYPERKALAEMIA [None]
  - INTRAVENTRICULAR HAEMORRHAGE [None]
